FAERS Safety Report 6073748-3 (Version None)
Quarter: 2009Q1

REPORT INFORMATION
  Report Type: 
  Country: None (occurrence: None)
  Receive Date: 20090211
  Receipt Date: 20090203
  Transmission Date: 20090719
  Serious: Yes (Hospitalization)
  Sender: FDA-Public Use
  Company Number: ES-BRISTOL-MYERS SQUIBB COMPANY-14497341

PATIENT
  Age: 40 Year
  Sex: Male

DRUGS (1)
  1. MITOMYCIN [Suspect]
     Indication: BLADDER TRANSITIONAL CELL CARCINOMA
     Dosage: INTRAVESICAL INSTILLLATION
     Route: 043

REACTIONS (3)
  - CYSTITIS [None]
  - HYDRONEPHROSIS [None]
  - URINOMA [None]
